FAERS Safety Report 9371623 (Version 1)
Quarter: 2013Q2

REPORT INFORMATION
  Report Type: Spontaneous
  Country: FR (occurrence: FR)
  Receive Date: 20130627
  Receipt Date: 20130627
  Transmission Date: 20140414
  Serious: Yes (Life-Threatening, Other)
  Sender: FDA-Public Use
  Company Number: PHHY2013FR065443

PATIENT
  Sex: Female

DRUGS (2)
  1. EXFORGE [Suspect]
     Indication: HYPERTENSION
     Dosage: UNK UKN, UNK
     Dates: end: 20120606
  2. ALDOMET [Concomitant]
     Indication: HYPERTENSION
     Dosage: UNK UKN, UNK

REACTIONS (3)
  - Oligohydramnios [Recovering/Resolving]
  - Amniotic fluid volume decreased [Recovered/Resolved]
  - Maternal exposure during pregnancy [Unknown]
